FAERS Safety Report 5875497-0 (Version None)
Quarter: 2008Q3

REPORT INFORMATION
  Report Type: 
  Country: None (occurrence: None)
  Receive Date: 20080909
  Receipt Date: 20080901
  Transmission Date: 20090109
  Serious: Yes (Disabling)
  Sender: FDA-Public Use
  Company Number: US-KINGPHARMUSA00001-K200801022

PATIENT

DRUGS (1)
  1. ALTACE [Suspect]
     Dosage: UNK, QD
     Route: 048
     Dates: start: 20071001, end: 20080731

REACTIONS (5)
  - CONJUNCTIVITIS [None]
  - DRUG INEFFECTIVE [None]
  - EXCESSIVE EYE BLINKING [None]
  - EYE IRRITATION [None]
  - LACRIMAL DISORDER [None]
